FAERS Safety Report 7954866-9 (Version None)
Quarter: 2011Q4

REPORT INFORMATION
  Report Type: 
  Country: None (occurrence: None)
  Receive Date: 20111202
  Receipt Date: 20111123
  Transmission Date: 20120403
  Serious: Yes (Hospitalization)
  Sender: FDA-Public Use
  Company Number: US-US-EMD SERONO, INC.-232298J10USA

PATIENT
  Sex: Female
  Weight: 64 kg

DRUGS (7)
  1. AMBIEN [Concomitant]
     Indication: INSOMNIA
  2. REBIF [Suspect]
     Route: 058
     Dates: start: 20100201
  3. NEURONTIN [Concomitant]
     Indication: NEURALGIA
  4. CYMBALTA [Concomitant]
     Indication: DEPRESSION
  5. REBIF [Suspect]
     Indication: MULTIPLE SCLEROSIS
     Route: 058
     Dates: start: 20060901, end: 20091201
  6. NAPROXEN [Concomitant]
     Indication: PREMEDICATION
  7. LORTAB [Concomitant]
     Indication: PAIN

REACTIONS (1)
  - ARTHRITIS [None]
